FAERS Safety Report 14311662 (Version 4)
Quarter: 2018Q3

REPORT INFORMATION
  Report Type: Report from Study
  Country: None (occurrence: US)
  Receive Date: 20171221
  Receipt Date: 20180817
  Transmission Date: 20181010
  Serious: Yes (Hospitalization, Other)
  Sender: FDA-Public Use
  Company Number: US-ABBVIE-17K-163-2146355-00

PATIENT
  Sex: Female

DRUGS (2)
  1. HUMIRA [Suspect]
     Active Substance: ADALIMUMAB
     Indication: CROHN^S DISEASE
     Route: 058
  2. HUMIRA [Suspect]
     Active Substance: ADALIMUMAB
     Indication: PSORIASIS

REACTIONS (10)
  - Condition aggravated [Unknown]
  - Chronic kidney disease [Unknown]
  - Drug interaction [Unknown]
  - Cystitis [Unknown]
  - Diarrhoea [Unknown]
  - Osteoarthritis [Unknown]
  - Fatigue [Unknown]
  - Asthenia [Unknown]
  - Iron deficiency [Unknown]
  - Bladder dilatation [Unknown]
